FAERS Safety Report 5193238-X (Version None)
Quarter: 2006Q4

REPORT INFORMATION
  Report Type: 
  Country: None (occurrence: None)
  Receive Date: 20061228
  Receipt Date: 20060720
  Transmission Date: 20070319
  Serious: No
  Sender: FDA-Public Use
  Company Number: US-GLAXOSMITHKLINE-A0613572A

PATIENT
  Age: 63 Year
  Sex: Male

DRUGS (8)
  1. AVODART [Suspect]
     Indication: DRUG USE FOR UNKNOWN INDICATION
     Dosage: .5MG PER DAY
     Route: 048
     Dates: start: 20050101, end: 20060701
  2. UROXATRAL [Concomitant]
  3. XALATAN [Concomitant]
  4. GLUCOSAMINE [Concomitant]
  5. ASCORBIC ACID [Concomitant]
  6. CENTRUM SILVER [Concomitant]
  7. COD LIVER OIL [Concomitant]
  8. ASPIRIN [Concomitant]

REACTIONS (1)
  - DRUG INEFFECTIVE [None]
